FAERS Safety Report 7197942-3 (Version None)
Quarter: 2010Q4

REPORT INFORMATION
  Report Type: 
  Country: None (occurrence: None)
  Receive Date: 20101227
  Receipt Date: 20101216
  Transmission Date: 20110411
  Serious: Yes (Death)
  Sender: FDA-Public Use
  Company Number: CO-ROCHE-745940

PATIENT
  Sex: Male

DRUGS (1)
  1. CELLCEPT [Suspect]
     Dosage: FREQUENCY: QD
     Route: 048
     Dates: start: 20100730, end: 20100909

REACTIONS (1)
  - RENAL FAILURE [None]
